FAERS Safety Report 9224114 (Version 4)
Quarter: 2013Q3

REPORT INFORMATION
  Report Type: Spontaneous
  Country: US (occurrence: US)
  Receive Date: 20130411
  Receipt Date: 20130710
  Transmission Date: 20140515
  Serious: No
  Sender: FDA-Public Use
  Company Number: US-PFIZER INC-2013111126

PATIENT
  Age: 70 Year
  Sex: Female
  Weight: 62.13 kg

DRUGS (12)
  1. SUTENT [Suspect]
     Indication: HEPATIC CANCER
     Dosage: 12.5 MG, 3X/DAY
     Route: 048
     Dates: start: 20130322, end: 20130503
  2. SUTENT [Suspect]
     Indication: ABDOMINAL NEOPLASM
     Dosage: 12.5 MG, 2X/DAY
     Route: 048
     Dates: start: 20130503
  3. NEURONTIN [Concomitant]
     Dosage: UNK
  4. OXYCODONE [Concomitant]
     Dosage: UNK
  5. ASPIRIN [Concomitant]
     Dosage: UNK
  6. ASPIRIN [Concomitant]
     Dosage: UNK
  7. MIRALAX [Concomitant]
     Dosage: UNK
  8. CALCIUM WITH VITAMIN D [Concomitant]
     Dosage: UNK, 1X/DAY
  9. FISH OIL [Concomitant]
     Dosage: UNK, 1X/DAY
  10. MEGACE [Concomitant]
     Dosage: UNK
  11. CALCIUM [Concomitant]
     Dosage: UNK, 1X/DAY
  12. VITAMIN D [Concomitant]
     Dosage: UNK, 1X/DAY

REACTIONS (19)
  - Malaise [Unknown]
  - Device occlusion [Unknown]
  - Dysgeusia [Unknown]
  - Decreased appetite [Unknown]
  - Asthenia [Unknown]
  - Fatigue [Recovering/Resolving]
  - Nausea [Unknown]
  - Constipation [Unknown]
  - Oral pain [Unknown]
  - Headache [Unknown]
  - Off label use [Unknown]
  - Red blood cell count decreased [Recovered/Resolved]
  - White blood cell count decreased [Recovered/Resolved]
  - Dysphagia [Unknown]
  - Decreased appetite [Unknown]
  - Stomatitis [Unknown]
  - Medical device complication [Unknown]
  - Faeces discoloured [Unknown]
  - Abnormal faeces [Unknown]
